FAERS Safety Report 8581274-2 (Version None)
Quarter: 2012Q3

REPORT INFORMATION
  Report Type: 
  Country: None (occurrence: None)
  Receive Date: 20120809
  Receipt Date: 20120806
  Transmission Date: 20120928
  Serious: Yes (Death)
  Sender: FDA-Public Use
  Company Number: PHHY2012BR068288

PATIENT
  Sex: Male

DRUGS (2)
  1. STALEVO 100 [Suspect]
  2. GALVUS [Suspect]

REACTIONS (1)
  - DEATH [None]
